FAERS Safety Report 7058422-9 (Version None)
Quarter: 2010Q4

REPORT INFORMATION
  Report Type: 
  Country: None (occurrence: None)
  Receive Date: 20101022
  Receipt Date: 20101012
  Transmission Date: 20110411
  Serious: Yes (Other)
  Sender: FDA-Public Use
  Company Number: US-PFIZER INC-2010130183

PATIENT
  Sex: Female
  Weight: 91 kg

DRUGS (1)
  1. XALATAN [Suspect]
     Indication: GLAUCOMA
     Dosage: ONE DROP IN EACH EYE, DAILY

REACTIONS (3)
  - EYE DISCHARGE [None]
  - EYELID OEDEMA [None]
  - OCULAR HYPERAEMIA [None]
